FAERS Safety Report 7680455-X (Version None)
Quarter: 2011Q3

REPORT INFORMATION
  Report Type: 
  Country: None (occurrence: None)
  Receive Date: 20110812
  Receipt Date: 20110801
  Transmission Date: 20111222
  Serious: Yes (Hospitalization)
  Sender: FDA-Public Use
  Company Number: US-JNJFOC-20071001798

PATIENT
  Sex: Male
  Weight: 42.5 kg

DRUGS (5)
  1. REMICADE [Suspect]
     Indication: CROHN'S DISEASE
     Route: 042
     Dates: start: 20060908
  2. REMICADE [Suspect]
     Dosage: 4 DOSES UP UNTIL THIS TIME
     Route: 042
     Dates: start: 20061213
  3. REMICADE [Suspect]
     Indication: INFLAMMATORY BOWEL DISEASE
     Dosage: 4 DOSES UP UNTIL THIS TIME
     Route: 042
     Dates: start: 20061213
  4. AZATHIOPRINE [Concomitant]
  5. REMICADE [Suspect]
     Route: 042
     Dates: start: 20060908

REACTIONS (1)
  - CELLULITIS [None]
